FAERS Safety Report 9406446 (Version 3)
Quarter: 2013Q3

REPORT INFORMATION
  Report Type: Report from Study
  Country: US (occurrence: US)
  Receive Date: 20130718
  Receipt Date: 20130828
  Transmission Date: 20140515
  Serious: Yes (Hospitalization)
  Sender: FDA-Public Use
  Company Number: US-ROCHE-1248620

PATIENT
  Age: 47 Year
  Sex: Female
  Weight: 41.86 kg

DRUGS (30)
  1. BEVACIZUMAB [Suspect]
     Indication: METASTATIC RENAL CELL CARCINOMA
     Route: 065
     Dates: start: 20130401, end: 20130625
  2. TEMSIROLIMUS [Suspect]
     Indication: METASTATIC RENAL CELL CARCINOMA
     Route: 042
     Dates: start: 20130401, end: 20130702
  3. OMEPRAZOLE [Concomitant]
     Dosage: 1 DELAYED RELEASE CAPSULE
     Route: 048
  4. ESTRADIOL [Concomitant]
     Dosage: 1 TABLET
     Route: 048
  5. HYDROMORPHONE [Concomitant]
     Indication: PAIN
     Dosage: 1-2 TABLETS
     Route: 048
  6. HYDROXYCHLOROQUINE [Concomitant]
     Dosage: 1 TABLET
     Route: 048
  7. LIDOCAINE - PRILOCAIN CREAM [Concomitant]
     Dosage: 2.5-2.5% 1 TOPICAL CREAM APPLICATION TWICE A DAY AS NEEDED.
     Route: 065
  8. LORAZEPAM [Concomitant]
     Dosage: 1 TABLET
     Route: 048
  9. LOSARTAN [Concomitant]
     Dosage: 2 TABLETS  ONCE A DAY THREE MONTH SUPPLY
     Route: 048
  10. METOCLOPRAMIDE HYDROCHLORIDE [Concomitant]
     Route: 048
  11. ONDANSETRON [Concomitant]
     Dosage: 1-2 TABLETS
     Route: 065
  12. PREDNISONE [Concomitant]
     Route: 048
  13. RANITIDINE HYDROCHLORIDE [Concomitant]
     Dosage: 2 TABLET
     Route: 048
  14. SIMVASTATIN [Concomitant]
     Route: 048
  15. TIZANIDINE [Concomitant]
     Indication: MUSCLE SPASMS
     Route: 065
  16. TRAMADOL [Concomitant]
     Indication: PAIN
     Dosage: 1/2-1 TABLET
     Route: 048
  17. ARANESP [Concomitant]
  18. ACETAMINOPHEN [Concomitant]
  19. CALCIUM CARBONATE [Concomitant]
     Route: 065
  20. DOCUSATE SODIUM [Concomitant]
  21. LOPERAMIDE [Concomitant]
  22. OXYMETAZOLINE [Concomitant]
  23. PHENYLEPHRINE [Concomitant]
  24. AMLODIPINE [Concomitant]
     Route: 048
  25. AXITINIB [Concomitant]
     Route: 048
  26. FENTORA [Concomitant]
     Route: 002
  27. FLUCONAZOLE [Concomitant]
     Route: 048
  28. LIDOCAINE [Concomitant]
     Dosage: 700 MG PER PATCH
     Route: 065
  29. CODEINE/GUAIFENESIN [Concomitant]
     Indication: COUGH
     Dosage: 100 MG PER 5 ML, 5-10 ML BY MOUTH EVENRY 6 HOURS AS NEEDED
     Route: 048
  30. CELLCEPT [Concomitant]
     Route: 065

REACTIONS (10)
  - Nausea [Unknown]
  - Metastases to lung [Unknown]
  - Dehydration [Recovered/Resolved]
  - Pain [Recovering/Resolving]
  - Vomiting [Unknown]
  - Dyspnoea [Unknown]
  - Cardiomyopathy [Unknown]
  - Lung infection [Unknown]
  - Pleural effusion [Unknown]
  - Neutropenic infection [Unknown]
